FAERS Safety Report 9117196 (Version 1)
Quarter: 2013Q1

REPORT INFORMATION
  Report Type: Spontaneous
  Country: US (occurrence: US)
  Receive Date: 20130128
  Receipt Date: 20130128
  Transmission Date: 20140127
  Serious: Yes (Hospitalization, Other)
  Sender: FDA-Public Use
  Company Number: US-TARO-2013P1000541

PATIENT
  Age: 69 Year
  Sex: Male
  Weight: 68.04 kg

DRUGS (4)
  1. AMIODARONE HCL [Suspect]
     Indication: ATRIAL FIBRILLATION
     Route: 048
     Dates: start: 2008, end: 201301
  2. WARFARIN [Concomitant]
  3. VERAPAMIL [Concomitant]
  4. FLEXERIL [Concomitant]

REACTIONS (7)
  - Pneumonia [Unknown]
  - Hypoxia [Recovering/Resolving]
  - Tremor [Unknown]
  - Cataract [Unknown]
  - Weight decreased [Not Recovered/Not Resolved]
  - General physical health deterioration [Not Recovered/Not Resolved]
  - Asthenia [Not Recovered/Not Resolved]
